FAERS Safety Report 18916616 (Version 5)
Quarter: 2021Q4

REPORT INFORMATION
  Report Type: Report from Study
  Country: CA (occurrence: CA)
  Receive Date: 20210219
  Receipt Date: 20211122
  Transmission Date: 20220303
  Serious: Yes (Hospitalization, Other)
  Sender: FDA-Public Use
  Company Number: CA-HLS-202107072

PATIENT
  Sex: Male

DRUGS (1)
  1. CLOZARIL [Suspect]
     Active Substance: CLOZAPINE
     Indication: Product used for unknown indication
     Dosage: UNKNOWN
     Route: 048
     Dates: start: 20200217

REACTIONS (5)
  - Contraindicated product administered [Unknown]
  - Localised infection [Unknown]
  - Treatment noncompliance [Unknown]
  - Pseudomonas infection [Unknown]
  - Seizure [Unknown]
